FAERS Safety Report 9192348 (Version 3)
Quarter: 2014Q1

REPORT INFORMATION
  Report Type: Spontaneous
  Country: US (occurrence: US)
  Receive Date: 20130327
  Receipt Date: 20140227
  Transmission Date: 20141002
  Serious: Yes (Hospitalization, Other)
  Sender: FDA-Public Use
  Company Number: US-BAYER-2013-038461

PATIENT
  Age: 21 Year
  Sex: Female

DRUGS (13)
  1. YAZ [Suspect]
  2. YASMIN [Suspect]
  3. OCELLA [Suspect]
  4. DOCUSATE SODIUM [Concomitant]
     Dosage: UNK
     Dates: start: 20091106
  5. POLYETHYLENE GLYCOL [Concomitant]
     Dosage: UNK
     Dates: start: 20091106
  6. NAPROXEN SODIUM [Concomitant]
     Dosage: UNK
     Dates: start: 20090902
  7. LORTAB [Concomitant]
     Dosage: UNK
     Dates: start: 20090901
  8. MORPHINE [Concomitant]
  9. AUGMENTIN [Concomitant]
  10. LEVAQUIN [Concomitant]
  11. FLAGYL [Concomitant]
  12. MOTRIN [Concomitant]
     Dosage: 600 MG, UNK
  13. VICODIN [Concomitant]

REACTIONS (5)
  - Gallbladder injury [None]
  - Cholecystitis chronic [None]
  - Injury [None]
  - Pain [None]
  - Pain [None]
